FAERS Safety Report 14110658 (Version 1)
Quarter: 2017Q4

REPORT INFORMATION
  Report Type: Spontaneous
  Country: IE (occurrence: IE)
  Receive Date: 20171020
  Receipt Date: 20171020
  Transmission Date: 20180321
  Serious: Yes (Hospitalization)
  Sender: FDA-Public Use
  Company Number: IE-FERRINGPH-2017FE05060

PATIENT

DRUGS (5)
  1. GONAL-F [Suspect]
     Active Substance: FOLLITROPIN
     Dosage: 150 IU, UNKNOWN
     Route: 065
     Dates: start: 20170503, end: 20170509
  2. MENOPUR [Suspect]
     Active Substance: FOLLITROPIN\LUTEINIZING HORMONE
     Indication: IN VITRO FERTILISATION
     Dosage: 150 IU, UNKNOWN
     Route: 065
     Dates: start: 20170503, end: 20170507
  3. GONAL-F [Suspect]
     Active Substance: FOLLITROPIN
     Dosage: 112.5 IU / 75 IU ALTERNATE DAYS
     Route: 065
     Dates: start: 20170511, end: 20170511
  4. GONAL-F [Suspect]
     Active Substance: FOLLITROPIN
     Indication: IN VITRO FERTILISATION
     Dosage: 112.5 IU / 75 IU ALTERNATE DAYS
     Route: 065
     Dates: start: 20170512
  5. GONAL-F [Suspect]
     Active Substance: FOLLITROPIN
     Dosage: 112.5 IU / 75 IU ALTERNATE DAYS
     Route: 065
     Dates: start: 20170510, end: 20170510

REACTIONS (6)
  - Abdominal pain [Recovered/Resolved]
  - Nausea [Recovered/Resolved]
  - Ovarian hyperstimulation syndrome [Recovered/Resolved]
  - Abdominal distension [Recovered/Resolved]
  - Pain [Recovered/Resolved]
  - Discomfort [Recovered/Resolved]

NARRATIVE: CASE EVENT DATE: 20170516
